FAERS Safety Report 8319697-9 (Version None)
Quarter: 2012Q1

REPORT INFORMATION
  Report Type: 
  Country: None (occurrence: None)
  Receive Date: 20120315
  Receipt Date: 20110303
  Transmission Date: 20120608
  Serious: No
  Sender: FDA-Public Use
  Company Number: PHHY2011US07182

PATIENT
  Age: 42 Year
  Sex: Female
  Weight: 92.5 kg

DRUGS (10)
  1. GABAPENTIN [Concomitant]
  2. ATENOLOL [Concomitant]
  3. GILENYA [Suspect]
     Indication: MULTIPLE SCLEROSIS
     Dosage: 0.5 MG, QD, ORAL
     Route: 048
     Dates: start: 20110119
  4. SIMVASTATIN [Concomitant]
  5. VITAMIN B12 [Concomitant]
  6. OMEPRAZOLE [Concomitant]
  7. TYLENOL ALLERGY SINUS (CHLORPHENAMINE MALEATE, PARACETAMOL, PSEUDOEPHE [Concomitant]
  8. EFEXOR XR (VENLAFAXINE) [Concomitant]
  9. BACLOFEN [Concomitant]
  10. IBUPROFEN [Concomitant]

REACTIONS (4)
  - FATIGUE [None]
  - ARTHRALGIA [None]
  - MUSCLE SPASMS [None]
  - MYALGIA [None]
